FAERS Safety Report 6425815-X (Version None)
Quarter: 2009Q4

REPORT INFORMATION
  Report Type: 
  Country: None (occurrence: None)
  Receive Date: 20091103
  Receipt Date: 20090306
  Transmission Date: 20100525
  Serious: No
  Sender: FDA-Public Use
  Company Number: US-ABBOTT-08P-163-0471178-00

PATIENT
  Sex: Female
  Weight: 79.904 kg

DRUGS (4)
  1. BIAXIN [Suspect]
     Indication: SINUSITIS
     Dosage: 500MG; 2 TABS Q HS
     Route: 048
     Dates: start: 20080806
  2. PREVACID [Concomitant]
     Indication: GASTROOESOPHAGEAL REFLUX DISEASE
     Route: 048
     Dates: start: 20070101
  3. CLARITIN [Concomitant]
     Indication: ALLERGIC SINUSITIS
     Route: 048
     Dates: start: 20060101
  4. VITAMIN B COMPLEX CAP [Concomitant]
     Indication: DRUG USE FOR UNKNOWN INDICATION
     Route: 048
     Dates: start: 20060101

REACTIONS (2)
  - PIGMENTATION DISORDER [None]
  - RASH PRURITIC [None]
